FAERS Safety Report 6491466-4 (Version None)
Quarter: 2009Q4

REPORT INFORMATION
  Report Type: 
  Country: None (occurrence: None)
  Receive Date: 20091211
  Receipt Date: 20091209
  Transmission Date: 20100525
  Serious: No
  Sender: FDA-Public Use
  Company Number: US-ROXANE LABORATORIES, INC.-2009-RO-01248RO

PATIENT

DRUGS (1)
  1. ROXICET [Suspect]

REACTIONS (3)
  - BURNING SENSATION [None]
  - PRODUCT COLOUR ISSUE [None]
  - PRODUCT TASTE ABNORMAL [None]
